FAERS Safety Report 15634300 (Version 1)
Quarter: 2018Q4

REPORT INFORMATION
  Report Type: Spontaneous
  Country: FR (occurrence: FR)
  Receive Date: 20181119
  Receipt Date: 20181119
  Transmission Date: 20190205
  Serious: Yes (Other)
  Sender: FDA-Public Use
  Company Number: FR-ALLERGAN-1853982US

PATIENT
  Age: 42 Year
  Sex: Male

DRUGS (4)
  1. TERCIAN [Suspect]
     Active Substance: CYAMEMAZINE
     Indication: SUICIDE ATTEMPT
     Dosage: 5 DF, UNK
     Route: 048
     Dates: start: 20170902, end: 20170902
  2. ZOPICLONE [Suspect]
     Active Substance: ZOPICLONE
     Indication: SUICIDE ATTEMPT
     Dosage: 14 DF, UNK
     Route: 048
     Dates: start: 20170902, end: 20170902
  3. ESCITALOPRAM OXALATE - BP [Suspect]
     Active Substance: ESCITALOPRAM OXALATE
     Indication: SUICIDE ATTEMPT
     Dosage: 9 DOSAGE FORMS IN THE CONTEXT OF AN INTENTIONAL OVERDOSE
     Route: 048
     Dates: start: 20170902, end: 20170902
  4. DIAZEPAM. [Suspect]
     Active Substance: DIAZEPAM
     Indication: SUICIDE ATTEMPT
     Dosage: 10 DF, UNK
     Route: 048
     Dates: start: 20170902, end: 20170902

REACTIONS (5)
  - Somnolence [Recovered/Resolved]
  - Intentional overdose [Unknown]
  - Bradyphrenia [Recovered/Resolved]
  - Coma [Recovered/Resolved]
  - Toxicity to various agents [Recovered/Resolved]

NARRATIVE: CASE EVENT DATE: 20170902
